FAERS Safety Report 20818703 (Version 1)
Quarter: 2022Q2

REPORT INFORMATION
  Report Type: Spontaneous
  Country: US (occurrence: None)
  Receive Date: 20220511
  Receipt Date: 20220511
  Transmission Date: 20220721
  Serious: No
  Sender: FDA-Public Use
  Company Number: None

PATIENT
  Age: 83 Year
  Sex: Male
  Weight: 100.24 kg

DRUGS (7)
  1. ERLEADA [Suspect]
     Active Substance: APALUTAMIDE
     Indication: Prostate cancer
     Dosage: FREQUENCY : DAILY;?
     Route: 048
     Dates: start: 20220112, end: 20220511
  2. ENALAPRIL-HYDRO [Concomitant]
  3. CHLOROTHIAZIDE [Concomitant]
  4. SIMVASTATIN [Concomitant]
  5. TRELSTAR MIXJECT [Concomitant]
  6. VITAMIN B12 [Concomitant]
     Active Substance: CYANOCOBALAMIN
  7. VITAMIN D3 [Concomitant]

REACTIONS (2)
  - Disease progression [None]
  - Prostatic specific antigen increased [None]
